FAERS Safety Report 18201698 (Version 2)
Quarter: 2020Q3

REPORT INFORMATION
  Report Type: Spontaneous
  Country: US (occurrence: US)
  Receive Date: 20200827
  Receipt Date: 20200902
  Transmission Date: 20201103
  Serious: Yes (Life-Threatening, Hospitalization)
  Sender: FDA-Public Use
  Company Number: US-PFIZER INC-2020329362

PATIENT
  Age: 62 Year
  Sex: Male

DRUGS (2)
  1. SULFAMETHOXAZOLE/TRIMETHOPRIM [Suspect]
     Active Substance: SULFAMETHOXAZOLE\TRIMETHOPRIM
     Indication: ANTIFUNGAL PROPHYLAXIS
     Dosage: UNK
  2. PREDNISONE. [Concomitant]
     Active Substance: PREDNISONE
     Indication: ANTIFUNGAL PROPHYLAXIS
     Dosage: 80 MG, 1X/DAY

REACTIONS (12)
  - Cardiac hypertrophy [Unknown]
  - Anaemia [Not Recovered/Not Resolved]
  - Electrocardiogram QRS complex prolonged [Unknown]
  - End stage renal disease [Not Recovered/Not Resolved]
  - Hypotension [Not Recovered/Not Resolved]
  - Renal tubular necrosis [Not Recovered/Not Resolved]
  - Hyperkalaemia [Recovered/Resolved]
  - Thrombotic microangiopathy [Not Recovered/Not Resolved]
  - Thrombocytopenia [Recovered/Resolved]
  - Pericardial effusion [Recovering/Resolving]
  - Renal failure [Not Recovered/Not Resolved]
  - Ejection fraction decreased [Recovering/Resolving]
